FAERS Safety Report 7740224-9 (Version None)
Quarter: 2011Q3

REPORT INFORMATION
  Report Type: 
  Country: None (occurrence: None)
  Receive Date: 20110909
  Receipt Date: 20110909
  Transmission Date: 20111222
  Serious: Yes (Hospitalization)
  Sender: FDA-Public Use
  Company Number: None

PATIENT
  Age: 50 Year
  Sex: Female
  Weight: 56.699 kg

DRUGS (1)
  1. LATUDA [Suspect]
     Indication: SCHIZOPHRENIA
     Dosage: 80 MG
     Route: 048
     Dates: start: 20110820, end: 20110831

REACTIONS (8)
  - CRYING [None]
  - PARANOIA [None]
  - CONFUSIONAL STATE [None]
  - HALLUCINATION [None]
  - AGGRESSION [None]
  - SUICIDAL IDEATION [None]
  - PANIC REACTION [None]
  - DRUG INEFFECTIVE [None]
